FAERS Safety Report 7331708-6 (Version None)
Quarter: 2011Q1

REPORT INFORMATION
  Report Type: 
  Country: None (occurrence: None)
  Receive Date: 20110304
  Receipt Date: 20110224
  Transmission Date: 20110831
  Serious: Yes (Hospitalization, Other)
  Sender: FDA-Public Use
  Company Number: CL-JNJFOC-20110300255

PATIENT
  Age: 48 Year
  Sex: Male

DRUGS (5)
  1. RISPERIDONE [Suspect]
     Indication: DEPRESSION
     Route: 065
  2. LAMOTRIGINE [Suspect]
     Indication: DEPRESSION
     Route: 065
  3. VALPROIC ACID [Suspect]
     Indication: DEPRESSION
     Route: 065
  4. SERTRALINE [Suspect]
     Indication: DEPRESSION
     Route: 065
  5. CLONAZEPAM [Suspect]
     Indication: DEPRESSION
     Route: 065

REACTIONS (3)
  - OFF LABEL USE [None]
  - CHOLESTASIS [None]
  - HEPATOTOXICITY [None]
